FAERS Safety Report 12908883 (Version 1)
Quarter: 2016Q4

REPORT INFORMATION
  Report Type: Spontaneous
  Country: US (occurrence: US)
  Receive Date: 20161103
  Receipt Date: 20161103
  Transmission Date: 20170207
  Serious: No
  Sender: FDA-Public Use
  Company Number: US-JAZZ-2016-US-016516

PATIENT
  Age: 55 Year
  Sex: Male

DRUGS (33)
  1. XYREM [Suspect]
     Active Substance: SODIUM OXYBATE
     Dosage: 2.25 G, BID
     Route: 048
     Dates: start: 20160831
  2. REPLENEX [Concomitant]
  3. VITALITY [Concomitant]
  4. VITAMIN K2 + D3 [Concomitant]
  5. BISACODYL. [Concomitant]
     Active Substance: BISACODYL
  6. PERCOCET [Concomitant]
     Active Substance: ACETAMINOPHEN\OXYCODONE HYDROCHLORIDE
  7. CARDIO OMEGA [Concomitant]
  8. PROVEXCV [Concomitant]
  9. CAFFEINE. [Concomitant]
     Active Substance: CAFFEINE
  10. NEOSPORIN [Concomitant]
     Active Substance: BACITRACIN ZINC\NEOMYCIN SULFATE\POLYMYXIN B SULFATE
  11. LOPERAMIDE [Concomitant]
     Active Substance: LOPERAMIDE
  12. NAPROXEN SODIUM. [Concomitant]
     Active Substance: NAPROXEN SODIUM
  13. RITALIN [Concomitant]
     Active Substance: METHYLPHENIDATE HYDROCHLORIDE
  14. HYDROCODONE/ACETAMINOPHEN [Concomitant]
     Active Substance: ACETAMINOPHEN\HYDROCODONE
  15. COENZYME Q10 [Concomitant]
     Active Substance: UBIDECARENONE
  16. FLUTICASONE PROPIONATE. [Concomitant]
     Active Substance: FLUTICASONE PROPIONATE
  17. CYCLOBENZAPRINE [Concomitant]
     Active Substance: CYCLOBENZAPRINE
  18. PROAIR HFA [Concomitant]
     Active Substance: ALBUTEROL SULFATE
  19. RECOVER [Concomitant]
  20. TRIAMTERENE AND HYDROCHLOROTHIAZIDE [Concomitant]
     Active Substance: HYDROCHLOROTHIAZIDE\TRIAMTERENE
  21. HYDROCORTISONE. [Concomitant]
     Active Substance: HYDROCORTISONE
  22. ESZOPICLONE. [Concomitant]
     Active Substance: ESZOPICLONE
  23. MELATONIN [Concomitant]
     Active Substance: MELATONIN
  24. XYREM [Suspect]
     Active Substance: SODIUM OXYBATE
     Indication: NARCOLEPSY
     Dosage: 2.25 G, BID
     Route: 048
     Dates: start: 201608, end: 201608
  25. CALCIUM + D3 [Concomitant]
     Active Substance: CALCIUM\CHOLECALCIFEROL
  26. CELL WISE [Concomitant]
  27. FLORIFY [Concomitant]
  28. PHYTOMEGA [Concomitant]
  29. ANALPRAM HC [Concomitant]
     Active Substance: HYDROCORTISONE ACETATE\PRAMOXINE HYDROCHLORIDE
  30. CETIRIZINE HCL [Concomitant]
     Active Substance: CETIRIZINE HYDROCHLORIDE
  31. LIDOCAINE. [Concomitant]
     Active Substance: LIDOCAINE
  32. FIBER [Concomitant]
     Active Substance: PSYLLIUM HUSK
  33. MULTIVITAMINS [Concomitant]
     Active Substance: VITAMINS

REACTIONS (13)
  - Impaired driving ability [Unknown]
  - Feeling hot [Unknown]
  - Disturbance in attention [Unknown]
  - Fatigue [Unknown]
  - Somnolence [Unknown]
  - Confusional state [Not Recovered/Not Resolved]
  - Productive cough [Unknown]
  - Poor peripheral circulation [Unknown]
  - Chest discomfort [Recovered/Resolved]
  - Feeling abnormal [Unknown]
  - Erythema [Unknown]
  - Muscular weakness [Unknown]
  - Asthenia [Unknown]

NARRATIVE: CASE EVENT DATE: 201608
